FAERS Safety Report 23798921 (Version 1)
Quarter: 2024Q2

REPORT INFORMATION
  Report Type: Spontaneous
  Country: US (occurrence: None)
  Receive Date: 20240427
  Receipt Date: 20240427
  Transmission Date: 20240716
  Serious: Yes (Life-Threatening, Hospitalization)
  Sender: FDA-Public Use
  Company Number: None

PATIENT
  Age: 74 Year
  Sex: Male

DRUGS (2)
  1. CARBOPLATIN [Suspect]
     Active Substance: CARBOPLATIN
     Dosage: FREQUENCY : ONCE;?
     Route: 042
     Dates: start: 20230327, end: 20230327
  2. PACLITAXEL [Suspect]
     Active Substance: PACLITAXEL
     Dosage: FREQUENCY : ONCE;?
     Route: 042
     Dates: start: 20230327, end: 20230327

REACTIONS (3)
  - Angina pectoris [None]
  - Chest pain [None]
  - Respiratory depression [None]

NARRATIVE: CASE EVENT DATE: 20230328
